FAERS Safety Report 23366860 (Version 2)
Quarter: 2024Q1

REPORT INFORMATION
  Report Type: Spontaneous
  Country: CN (occurrence: None)
  Receive Date: 20240104
  Receipt Date: 20240110
  Transmission Date: 20240409
  Serious: Yes (Hospitalization, Other)
  Sender: FDA-Public Use
  Company Number: 2023A283624

PATIENT
  Sex: Female

DRUGS (3)
  1. IMFINZI [Suspect]
     Active Substance: DURVALUMAB
     Indication: Small cell lung cancer
     Dosage: 1000.0MG EVERY CYCLE
     Route: 042
     Dates: start: 202209, end: 202310
  2. ASPIRIN [Concomitant]
     Active Substance: ASPIRIN
     Indication: Product used for unknown indication
  3. INSULIN NOS [Concomitant]
     Active Substance: INSULIN NOS

REACTIONS (8)
  - Dehydration [Recovering/Resolving]
  - Hyperosmolar state [Recovering/Resolving]
  - Type 1 diabetes mellitus [Unknown]
  - Urinary tract infection [Unknown]
  - Blood glucose increased [Recovering/Resolving]
  - Coma [Unknown]
  - Pneumonia [Unknown]
  - Critical illness [Unknown]
